FAERS Safety Report 6695427-1 (Version None)
Quarter: 2010Q2

REPORT INFORMATION
  Report Type: 
  Country: None (occurrence: None)
  Receive Date: 20100422
  Receipt Date: 20100422
  Transmission Date: 20101027
  Serious: No
  Sender: FDA-Public Use
  Company Number: None

PATIENT

DRUGS (1)
  1. BROVANA [Suspect]
     Dosage: 2 ML TWICE PER DAY

REACTIONS (2)
  - LUNG INFECTION [None]
  - PULMONARY OEDEMA [None]
